FAERS Safety Report 13820065 (Version 1)
Quarter: 2017Q3

REPORT INFORMATION
  Report Type: Spontaneous
  Country: US (occurrence: US)
  Receive Date: 20170801
  Receipt Date: 20170801
  Transmission Date: 20171127
  Serious: Yes (Other)
  Sender: FDA-Public Use
  Company Number: None

PATIENT
  Age: 9 Year
  Sex: Male
  Weight: 28.35 kg

DRUGS (2)
  1. CHILDREN^S CETIRIZINE [Suspect]
     Active Substance: CETIRIZINE HYDROCHLORIDE
     Indication: SEASONAL ALLERGY
     Dosage: ?          QUANTITY:10 MLS;?
     Route: 048
     Dates: start: 20130601, end: 20170731
  2. CHILDREN^S CETIRIZINE [Suspect]
     Active Substance: CETIRIZINE HYDROCHLORIDE
     Indication: PRURITUS
     Dosage: ?          QUANTITY:10 MLS;?
     Route: 048
     Dates: start: 20130601, end: 20170731

REACTIONS (6)
  - Palpitations [None]
  - Sleep disorder [None]
  - Anger [None]
  - Pollakiuria [None]
  - Panic attack [None]
  - Insomnia [None]

NARRATIVE: CASE EVENT DATE: 20170605
